FAERS Safety Report 16196504 (Version 1)
Quarter: 2019Q2

REPORT INFORMATION
  Report Type: Spontaneous
  Country: US (occurrence: US)
  Receive Date: 20190415
  Receipt Date: 20190415
  Transmission Date: 20190711
  Serious: Yes (Hospitalization, Other)
  Sender: FDA-Public Use
  Company Number: US-IPCA LABORATORIES LIMITED-IPC-2019-US-000414

PATIENT

DRUGS (1)
  1. WARFARIN [Suspect]
     Active Substance: WARFARIN
     Indication: PULMONARY EMBOLISM
     Dosage: UNK
     Route: 065

REACTIONS (3)
  - Cardiac tamponade [Recovered/Resolved]
  - Cardiac arrest [Unknown]
  - Anticoagulation drug level above therapeutic [Recovered/Resolved]
